FAERS Safety Report 6930578-5 (Version None)
Quarter: 2010Q3

REPORT INFORMATION
  Report Type: 
  Country: None (occurrence: None)
  Receive Date: 20100813
  Receipt Date: 20100804
  Transmission Date: 20110219
  Serious: Yes (Hospitalization)
  Sender: FDA-Public Use
  Company Number: TCI2010A03115

PATIENT
  Age: 52 Year
  Sex: Female

DRUGS (6)
  1. TAKEPRON OD TABLETS 15 (LANSOPRAZOLE) [Suspect]
     Indication: PROPHYLAXIS AGAINST GASTROINTESTINAL ULCER
     Dosage: 15 MG (15 MG,1 IN 1 D) PER ORAL
     Route: 048
     Dates: end: 20100713
  2. PREDNISOLONE [Concomitant]
  3. SLOW-K [Concomitant]
  4. URSO 250 [Concomitant]
  5. LOSARTAN POTASSIUM [Concomitant]
  6. NORVASC [Concomitant]

REACTIONS (4)
  - GITELMAN'S SYNDROME [None]
  - HYPOAESTHESIA [None]
  - TETANY [None]
  - TREATMENT NONCOMPLIANCE [None]
